FAERS Safety Report 23531632 (Version 1)
Quarter: 2024Q1

REPORT INFORMATION
  Report Type: Spontaneous
  Country: CA (occurrence: CA)
  Receive Date: 20240216
  Receipt Date: 20240216
  Transmission Date: 20240410
  Serious: Yes (Hospitalization)
  Sender: FDA-Public Use
  Company Number: CA-AstraZeneca-2024A032829

PATIENT
  Age: 80 Year
  Sex: Female

DRUGS (1)
  1. TRASTUZUMAB DERUXTECAN [Suspect]
     Active Substance: TRASTUZUMAB DERUXTECAN
     Indication: Breast cancer female
     Dosage: 294 MG, ONCE EVERY 3 WK
     Route: 042

REACTIONS (3)
  - Hypotension [Unknown]
  - Diarrhoea [Unknown]
  - Nausea [Unknown]
